FAERS Safety Report 9183259 (Version 1)
Quarter: 2012Q4

REPORT INFORMATION
  Report Type: 
  Country: US (occurrence: US)
  Receive Date: 20121030
  Receipt Date: 20121030
  Transmission Date: 20130627
  Serious: No
  Sender: FDA-Public Use
  Company Number: US-009507513-1210USA005688

PATIENT
  Age: 16 Year
  Sex: Female
  Weight: 87.44 kg

DRUGS (1)
  1. IMPLANON [Suspect]
     Indication: CONTRACEPTION
     Dosage: 1 rod every 3 years
     Route: 059
     Dates: start: 20120430

REACTIONS (3)
  - Emotional disorder [Not Recovered/Not Resolved]
  - Tenderness [Unknown]
  - Mood swings [Not Recovered/Not Resolved]
